FAERS Safety Report 5341885-4 (Version None)
Quarter: 2007Q2

REPORT INFORMATION
  Report Type: 
  Country: None (occurrence: None)
  Receive Date: 20070529
  Receipt Date: 20070529
  Transmission Date: 20071010
  Serious: Yes (Hospitalization)
  Sender: FDA-Public Use
  Company Number: None

PATIENT
  Sex: Female
  Weight: 109 kg

DRUGS (2)
  1. TAXOL [Suspect]
     Dosage: 385 MG
     Dates: end: 20070507
  2. DECADRON [Suspect]

REACTIONS (8)
  - BLOOD AMYLASE INCREASED [None]
  - CONFUSIONAL STATE [None]
  - DYSPHAGIA [None]
  - HYPERGLYCAEMIA [None]
  - HYPOTENSION [None]
  - LIPASE INCREASED [None]
  - POLLAKIURIA [None]
  - RENAL FAILURE ACUTE [None]
